FAERS Safety Report 6177819-2 (Version None)
Quarter: 2009Q2

REPORT INFORMATION
  Report Type: 
  Country: None (occurrence: None)
  Receive Date: 20090501
  Receipt Date: 20090501
  Transmission Date: 20091009
  Serious: Yes (Hospitalization)
  Sender: FDA-Public Use
  Company Number: None

PATIENT
  Age: 63 Year
  Sex: Male
  Weight: 105.1 kg

DRUGS (1)
  1. PIPERACILLIN SODIUM AND TAZOBACTAM SODIUM [Suspect]
     Indication: SPLENIC ABSCESS
     Dosage: 2.25 MG OTHER IV
     Route: 042
     Dates: start: 20090402, end: 20090415

REACTIONS (1)
  - THROMBOCYTOPENIA [None]
